FAERS Safety Report 8485522-9 (Version None)
Quarter: 2012Q2

REPORT INFORMATION
  Report Type: 
  Country: None (occurrence: None)
  Receive Date: 20120627
  Receipt Date: 20120627
  Transmission Date: 20120825
  Serious: Yes (Hospitalization, Other)
  Sender: FDA-Public Use
  Company Number: None

PATIENT
  Age: 46 Year
  Sex: Female
  Weight: 113.3993 kg

DRUGS (1)
  1. EMSAM [Suspect]
     Indication: MAJOR DEPRESSION
     Dosage: TRANSDERMANL PATCH EVERY 24 HOURS TRANSDERMAL
     Route: 062
     Dates: start: 20120424, end: 20120424

REACTIONS (1)
  - SEROTONIN SYNDROME [None]
